FAERS Safety Report 10627260 (Version 5)
Quarter: 2017Q3

REPORT INFORMATION
  Report Type: Spontaneous
  Country: KR (occurrence: KR)
  Receive Date: 20141204
  Receipt Date: 20170728
  Transmission Date: 20171127
  Serious: Yes (Hospitalization, Other)
  Sender: FDA-Public Use
  Company Number: KR-009507513-1412KOR001581

PATIENT
  Age: 41 Year
  Sex: Male
  Weight: 87 kg

DRUGS (22)
  1. KYTRIL [Concomitant]
     Active Substance: GRANISETRON HYDROCHLORIDE
     Indication: PREMEDICATION
     Dosage: STRENGTH: 3 MG/ 3ML; 3 MG, ONCE
     Route: 042
     Dates: start: 20141020, end: 20141020
  2. MANNITOL. [Concomitant]
     Active Substance: MANNITOL
     Indication: NEPHROPROTECTIVE THERAPY
     Dosage: STRENGTH 15 %, 100 ML; 100 ML, BID
     Route: 042
     Dates: start: 20141017, end: 20141017
  3. ADELAVIN (FLAVIN ADENINE DINUCLEOTIDE (+) LIVER EXTRACT) [Concomitant]
     Indication: NUTRITIONAL SUPPLEMENTATION
     Dosage: 2 AMP,QD
     Route: 042
     Dates: start: 20141015
  4. MACPERAN [Concomitant]
     Active Substance: METOCLOPRAMIDE HYDROCHLORIDE
     Indication: PROPHYLAXIS OF NAUSEA AND VOMITING
     Dosage: 30 MG, ONCE
     Route: 042
     Dates: start: 20141020, end: 20141020
  5. CHLORPHENIRAMINE MALEATE. [Concomitant]
     Active Substance: CHLORPHENIRAMINE MALEATE
     Indication: ALLERGY PROPHYLAXIS
     Dosage: STRENGTH: 2MG/2ML; 4 MG, QD
     Route: 042
     Dates: start: 20141020, end: 20141020
  6. SMOFLIPID [Concomitant]
     Active Substance: FISH OIL\MEDIUM-CHAIN TRIGLYCERIDES\OLIVE OIL\SOYBEAN OIL
     Indication: NUTRITIONAL SUPPLEMENTATION
     Dosage: STRENGTH: 20%, 500 ML; 500 ML, QD
     Route: 042
     Dates: start: 20141017
  7. BARACLUDE [Concomitant]
     Active Substance: ENTECAVIR
     Indication: HEPATITIS B
     Dosage: 0.5 TABLET, QD
     Route: 048
     Dates: start: 20140228
  8. POTASSIUM CHLORIDE. [Concomitant]
     Active Substance: POTASSIUM CHLORIDE
     Indication: PROPHYLAXIS
     Dosage: 10 ML, BID
     Route: 042
     Dates: start: 20141017, end: 20141017
  9. MASI [Concomitant]
     Indication: PROPHYLAXIS
     Dosage: STRENGTH 10%, 2G/20ML; 10 ML, BID
     Route: 042
     Dates: start: 20141017, end: 20141017
  10. MUTERAN [Concomitant]
     Active Substance: ACETYLCYSTEINE
     Indication: PROPHYLAXIS
     Dosage: 1 CAPSULE, TID
     Route: 048
     Dates: start: 20141017
  11. MACPERAN [Concomitant]
     Active Substance: METOCLOPRAMIDE HYDROCHLORIDE
     Dosage: 0.5 AMP, TID
     Route: 042
     Dates: start: 20141101, end: 20141104
  12. ALIMTA [Concomitant]
     Active Substance: PEMETREXED DISODIUM
     Indication: CHEMOTHERAPY
     Dosage: 1015 MG, ONCE, CYCLE 1
     Route: 042
     Dates: start: 20141020, end: 20141020
  13. CISPLATIN. [Concomitant]
     Active Substance: CISPLATIN
     Indication: CHEMOTHERAPY
     Dosage: STRENGTH: 50 MG/ 100ML; 121.8 MG, ONCE, CYCLE 1
     Route: 042
     Dates: start: 20141020, end: 20141020
  14. DEXAMETHASONE SODIUM PHOSPHATE. [Concomitant]
     Active Substance: DEXAMETHASONE SODIUM PHOSPHATE
     Indication: PREMEDICATION
     Dosage: STRENGTH: 5 MG/ML; 12 MG, ONCE
     Route: 042
     Dates: start: 20141020, end: 20141020
  15. LASIX [Concomitant]
     Active Substance: FUROSEMIDE
     Indication: PROPHYLAXIS
     Dosage: STRENGTH 20MG/2ML; 20 MG, BID
     Route: 042
     Dates: start: 20141017, end: 20141017
  16. EMEND (FOSAPREPITANT DIMEGLUMINE) [Suspect]
     Active Substance: FOSAPREPITANT DIMEGLUMINE
     Indication: PROPHYLAXIS OF NAUSEA AND VOMITING
     Dosage: 150 MG, ONCE
     Route: 042
     Dates: start: 20141020, end: 20141020
  17. AMIRAL [Concomitant]
     Indication: NUTRITIONAL SUPPLEMENTATION
     Dosage: 500 ML, QD
     Route: 042
     Dates: start: 20141018
  18. RIBOFLAVIN (+) THIAMINE (+) URSODIOL [Concomitant]
     Indication: HEPATITIS B
     Dosage: 1 TABLET, TID
     Route: 048
     Dates: start: 20141017
  19. MULTIBLUE5 [Concomitant]
     Indication: NUTRITIONAL SUPPLEMENTATION
     Dosage: 1 VIAL, QD
     Route: 042
     Dates: start: 20141017
  20. SELENIOUS ACID. [Concomitant]
     Active Substance: SELENIOUS ACID
     Indication: NUTRITIONAL SUPPLEMENTATION
     Dosage: 1 VIAL, QD
     Route: 042
     Dates: start: 20141019
  21. FOLIC ACID. [Concomitant]
     Active Substance: FOLIC ACID
     Indication: NUTRITIONAL SUPPLEMENTATION
     Dosage: 1 TABLET, QD
     Route: 048
     Dates: start: 20141015
  22. PRIVITUSS [Concomitant]
     Indication: PROPHYLAXIS
     Dosage: 1 PACK, TID
     Route: 048
     Dates: start: 20141017

REACTIONS (1)
  - Cholangitis [Recovered/Resolved]

NARRATIVE: CASE EVENT DATE: 20141030
